FAERS Safety Report 15071370 (Version 1)
Quarter: 2018Q2

REPORT INFORMATION
  Report Type: Report from Study
  Country: US (occurrence: US)
  Receive Date: 20180626
  Receipt Date: 20180626
  Transmission Date: 20180711
  Serious: No
  Sender: FDA-Public Use
  Company Number: US-AMGEN-USASL2015096947

PATIENT
  Age: 82 Year
  Sex: Female

DRUGS (1)
  1. PROLIA [Suspect]
     Active Substance: DENOSUMAB
     Indication: ARTHRITIS
     Dosage: UNK
     Route: 065
     Dates: start: 201503

REACTIONS (6)
  - Fatigue [Unknown]
  - Malaise [Unknown]
  - Muscle spasms [Unknown]
  - Pruritus [Unknown]
  - Asthenia [Unknown]
  - Off label use [Unknown]
